FAERS Safety Report 21657998 (Version 1)
Quarter: 2022Q4

REPORT INFORMATION
  Report Type: Spontaneous
  Country: US (occurrence: None)
  Receive Date: 20221128
  Receipt Date: 20221128
  Transmission Date: 20230113
  Serious: Yes (Death)
  Sender: FDA-Public Use
  Company Number: None

PATIENT
  Age: 70 Year
  Sex: Female

DRUGS (1)
  1. AFINITOR [Suspect]
     Active Substance: EVEROLIMUS
     Indication: Carcinoid tumour of the gastrointestinal tract
     Dosage: FREQUENCY : DAILY;?
     Route: 048

REACTIONS (3)
  - Renal failure [None]
  - Neoplasm malignant [None]
  - Metastatic neoplasm [None]

NARRATIVE: CASE EVENT DATE: 20221109
